FAERS Safety Report 24692758 (Version 1)
Quarter: 2024Q4

REPORT INFORMATION
  Report Type: Spontaneous
  Country: US (occurrence: None)
  Receive Date: 20241203
  Receipt Date: 20241203
  Transmission Date: 20250115
  Serious: Yes (Hospitalization)
  Sender: Public
  Company Number: None

PATIENT
  Age: 75 Year
  Sex: Male

DRUGS (2)
  1. OXYCODONE HYDROCHLORIDE [Suspect]
     Active Substance: OXYCODONE HYDROCHLORIDE
     Indication: Pain
     Dates: start: 20241025
  2. DIAZEPAM [Suspect]
     Active Substance: DIAZEPAM

REACTIONS (6)
  - Dyspnoea [None]
  - Hypoxia [None]
  - Cough [None]
  - Encephalopathy [None]
  - Toxicity to various agents [None]
  - Aspiration [None]

NARRATIVE: CASE EVENT DATE: 20241028
